FAERS Safety Report 6049192-1 (Version None)
Quarter: 2009Q1

REPORT INFORMATION
  Report Type: 
  Country: None (occurrence: None)
  Receive Date: 20090123
  Receipt Date: 20090114
  Transmission Date: 20090719
  Serious: Yes (Other)
  Sender: FDA-Public Use
  Company Number: BR-PFIZER INC-2008159955

PATIENT

DRUGS (7)
  1. CELEBRA [Suspect]
     Indication: SINUSITIS
     Dosage: 200 MG, 2X/DAY
     Route: 048
     Dates: start: 20081201, end: 20081217
  2. CELEBRA [Suspect]
     Indication: BACK PAIN
  3. ATENOLOL [Concomitant]
  4. LIPITOR [Concomitant]
     Dosage: UNK
     Dates: start: 19990101
  5. LEVOTHYROXINE [Concomitant]
  6. PANTOPRAZOLE [Concomitant]
  7. BENEGRIP [Concomitant]
     Dosage: UNK
     Dates: start: 20081201

REACTIONS (7)
  - DRUG HYPERSENSITIVITY [None]
  - EYE SWELLING [None]
  - GENERALISED OEDEMA [None]
  - INFLUENZA [None]
  - SINUSITIS [None]
  - SWELLING FACE [None]
  - TREMOR [None]
